FAERS Safety Report 18386954 (Version 1)
Quarter: 2020Q4

REPORT INFORMATION
  Report Type: Spontaneous
  Country: US (occurrence: US)
  Receive Date: 20201015
  Receipt Date: 20201015
  Transmission Date: 20210114
  Serious: No
  Sender: FDA-Public Use
  Company Number: US-ANIPHARMA-2020-US-019459

PATIENT
  Age: 66 Year
  Sex: Female
  Weight: 61 kg

DRUGS (16)
  1. ELAVIL [Concomitant]
     Active Substance: AMITRIPTYLINE HYDROCHLORIDE
     Dosage: TAKE 50 MG BY MOUTH NIGHTLY
     Route: 048
  2. NAPROSYN [Concomitant]
     Active Substance: NAPROXEN
     Dosage: TAKE 500 MG BY MOUTH 2 (TWO) TIMES A DAY WITH MEALS
     Route: 048
  3. COENZYME Q10 [Concomitant]
     Active Substance: DIETARY SUPPLEMENT\UBIDECARENONE
     Dosage: TAKE 100 MG BY MOUTH DAILY
     Route: 048
  4. PROBIOTIC COMPLEX ORAL [Concomitant]
     Dosage: TAKE BY MOUTH
     Route: 048
  5. BIOTIN [Concomitant]
     Active Substance: BIOTIN
     Dosage: TAKE BY MOUTH
     Route: 048
  6. MAGNESIUM OXIDE. [Interacting]
     Active Substance: MAGNESIUM OXIDE
     Dosage: TAKE 250 MG BY MOUTH DAILY
     Route: 048
  7. NEXIUM [Concomitant]
     Active Substance: ESOMEPRAZOLE MAGNESIUM
     Dosage: TAKE 40 MG BY MOUTH AS NEEDED
     Route: 048
  8. ZOCOR [Concomitant]
     Active Substance: SIMVASTATIN
     Dosage: TAKE 10 MG BY MOUTH NIGHTLY
     Route: 048
  9. TYLENOL ORAL [Concomitant]
     Dosage: TAKE BY MOUTH AS NEEDED
     Route: 048
  10. MULTIVITAMIN ORAL [Concomitant]
     Dosage: TAKE BY MOUTH
     Route: 048
  11. MELATONIN [Concomitant]
     Active Substance: MELATONIN
     Dosage: TAKE BY MOUTH
     Route: 048
  12. ANASTROZOLE. [Suspect]
     Active Substance: ANASTROZOLE
     Indication: BREAST CANCER
     Dosage: TAKE 1 TABLET (1 MG TOTAL) DAILY
     Route: 048
     Dates: start: 20190730
  13. MIRALAX [Concomitant]
     Active Substance: POLYETHYLENE GLYCOL 3350
     Dosage: TAKE 17 G BY MOUTH DAILY
     Route: 048
  14. CALCIUM ORAL [Concomitant]
     Dosage: TAKE BY MOUTH
     Route: 048
  15. VITAMIN D3 [Concomitant]
     Active Substance: CHOLECALCIFEROL
     Dosage: TAKE 2,000 UNITS BY MOUTH DAILY
     Route: 048
  16. FOSAMAX [Concomitant]
     Active Substance: ALENDRONATE SODIUM
     Dosage: TAKE 1 TAB WEEKLY, IN THE AM WITH A FULL GLASS OF WATER ON AN EMPTY STOMACH
     Route: 065

REACTIONS (5)
  - Libido decreased [Unknown]
  - Hot flush [Unknown]
  - Breast tenderness [Unknown]
  - Anxiety [Unknown]
  - Arthralgia [Unknown]
